FAERS Safety Report 10207102 (Version 1)
Quarter: 2014Q2

REPORT INFORMATION
  Report Type: Spontaneous
  Country: US (occurrence: None)
  Receive Date: 20140528
  Receipt Date: 20140528
  Transmission Date: 20141212
  Serious: Yes (Life-Threatening, Hospitalization)
  Sender: FDA-Public Use
  Company Number: None

PATIENT
  Age: 48 Year
  Sex: Female

DRUGS (13)
  1. BEVACIZUMAB [Suspect]
     Indication: LUNG NEOPLASM MALIGNANT
     Dosage: LESS THAN 4 MONTHS
  2. ENOXAPARIN [Concomitant]
  3. ACYCLOVIR [Concomitant]
  4. CLOTRIMAZOLE [Concomitant]
  5. FOLIC ACID [Concomitant]
  6. MAGNESIUM OXIDE [Concomitant]
  7. NICOTINE PATCH [Concomitant]
  8. PANTOPRAZOLE [Concomitant]
  9. SUCRALFATE [Concomitant]
  10. OXYCODONE [Concomitant]
  11. BEVACIZUMAB [Concomitant]
  12. CARBOPLATIN [Concomitant]
  13. PEMETREXED [Concomitant]

REACTIONS (4)
  - Posterior reversible encephalopathy syndrome [None]
  - Blood pressure systolic increased [None]
  - Blood pressure diastolic increased [None]
  - Generalised tonic-clonic seizure [None]
